FAERS Safety Report 7803617-7 (Version None)
Quarter: 2011Q4

REPORT INFORMATION
  Report Type: 
  Country: None (occurrence: None)
  Receive Date: 20111010
  Receipt Date: 20110929
  Transmission Date: 20120403
  Serious: Yes (Hospitalization)
  Sender: FDA-Public Use
  Company Number: US-BIOGENIDEC-2010BI012661

PATIENT
  Age: 43 Year
  Sex: Female
  Weight: 66 kg

DRUGS (13)
  1. NEURONTIN [Concomitant]
  2. AMBIEN [Concomitant]
  3. TYSABRI [Suspect]
     Indication: MULTIPLE SCLEROSIS
     Route: 042
     Dates: start: 20080520, end: 20100309
  4. ARICEPT [Concomitant]
  5. HYDROCHLOROTHIAZIDE [Concomitant]
  6. ZOCOR [Concomitant]
  7. MECLIZINE [Concomitant]
  8. PHENERGAN HCL [Concomitant]
  9. ELAVIL [Concomitant]
     Indication: URINARY HESITATION
  10. TYSABRI [Suspect]
     Route: 042
     Dates: start: 20100610
  11. POTASSIUM [Concomitant]
  12. ZONEGRAN [Concomitant]
  13. ZANAFLEX [Concomitant]

REACTIONS (35)
  - EROSIVE OESOPHAGITIS [None]
  - MIGRAINE [None]
  - ULCER HAEMORRHAGE [None]
  - ABNORMAL FAECES [None]
  - CONSTIPATION [None]
  - FAECAL INCONTINENCE [None]
  - HAEMATOCHEZIA [None]
  - HYPERHIDROSIS [None]
  - GALLBLADDER DISORDER [None]
  - BLADDER DISORDER [None]
  - APHASIA [None]
  - TRIGEMINAL NEURALGIA [None]
  - PAIN IN JAW [None]
  - TINNITUS [None]
  - WEIGHT DECREASED [None]
  - MEMORY IMPAIRMENT [None]
  - ABNORMAL DREAMS [None]
  - HYPOAESTHESIA [None]
  - HAEMATEMESIS [None]
  - TREMOR [None]
  - MUSCLE SPASMS [None]
  - VISUAL IMPAIRMENT [None]
  - SOMNOLENCE [None]
  - GASTRITIS [None]
  - NAUSEA [None]
  - EAR PAIN [None]
  - MUSCULOSKELETAL STIFFNESS [None]
  - DYSURIA [None]
  - VOMITING [None]
  - PAIN [None]
  - CONTUSION [None]
  - ABDOMINAL PAIN UPPER [None]
  - PALPITATIONS [None]
  - PARAESTHESIA [None]
  - MULTIPLE SCLEROSIS RELAPSE [None]
